APPROVED DRUG PRODUCT: SULFAMYLON
Active Ingredient: MAFENIDE ACETATE
Strength: 5%
Dosage Form/Route: FOR SOLUTION;TOPICAL
Application: N019832 | Product #003
Applicant: MYLAN INSTITUTIONAL INC
Approved: Jun 5, 1998 | RLD: Yes | RS: No | Type: DISCN